FAERS Safety Report 6158137-5 (Version None)
Quarter: 2009Q2

REPORT INFORMATION
  Report Type: 
  Country: None (occurrence: None)
  Receive Date: 20090417
  Receipt Date: 20090415
  Transmission Date: 20091009
  Serious: Yes (Other)
  Sender: FDA-Public Use
  Company Number: PHEH2007US06767

PATIENT
  Sex: Female
  Weight: 56.689 kg

DRUGS (9)
  1. ESTRADERM [Suspect]
     Indication: MENOPAUSE
     Dosage: 0.05MG TWICE WEEKLY DAYS 1-25
     Route: 061
  2. PREMPRO [Suspect]
     Indication: MENOPAUSE
     Dosage: 0.625/2.5MG
     Dates: start: 19960101, end: 20000201
  3. SEX HORMONES AND MODULATORS OF THE GENI. SYS. [Suspect]
     Indication: OSTEOPOROSIS
     Dates: start: 19900101, end: 19960101
  4. CELEBREX [Concomitant]
     Indication: ARTHRITIS
     Dosage: 200MG QD
     Dates: start: 19980101
  5. RANITIDINE [Concomitant]
     Indication: HIATUS HERNIA
     Dosage: 150MG UNK
  6. METOCLOPRAMIDE [Concomitant]
     Indication: HIATUS HERNIA
  7. FOSAMAX [Concomitant]
  8. CALCIUM [Concomitant]
  9. PROVERA [Concomitant]
     Dosage: 2.5MG DAYS 1-25

REACTIONS (17)
  - ABDOMINAL DISTENSION [None]
  - BASAL CELL CARCINOMA [None]
  - BREAST CALCIFICATIONS [None]
  - BREAST CANCER STAGE I [None]
  - BREAST MASS [None]
  - DEPRESSION [None]
  - DIVERTICULUM [None]
  - HAEMORRHOIDS [None]
  - HOT FLUSH [None]
  - MALIGNANT BREAST LUMP REMOVAL [None]
  - MASTECTOMY [None]
  - METRORRHAGIA [None]
  - OSTEOPENIA [None]
  - OSTEOPOROSIS [None]
  - RADIOTHERAPY [None]
  - RIB FRACTURE [None]
  - VAGINAL DISCHARGE [None]
